FAERS Safety Report 4588705-3 (Version None)
Quarter: 2005Q1

REPORT INFORMATION
  Report Type: 
  Country: None (occurrence: None)
  Receive Date: 20050222
  Receipt Date: 20050214
  Transmission Date: 20050727
  Serious: Yes (Hospitalization)
  Sender: FDA-Public Use
  Company Number: PHFR2005GB00884

PATIENT
  Age: 67 Year
  Sex: Female

DRUGS (4)
  1. BACLOFEN [Suspect]
     Indication: MUSCLE SPASMS
     Dosage: 10MG/DAY
     Route: 048
     Dates: start: 20050127, end: 20050201
  2. AMITRIPTYLINE HCL [Concomitant]
     Indication: CHEST PAIN
     Dosage: 10 MG, QD
     Route: 048
     Dates: start: 20041001, end: 20050201
  3. LANSOPRAZOLE [Concomitant]
     Indication: GASTROOESOPHAGEAL REFLUX DISEASE
     Dosage: 30 MG, QD
     Route: 048
  4. CALCITRIOL [Concomitant]
     Indication: RENAL FAILURE
     Dosage: 2 UG, QW2
     Route: 048

REACTIONS (2)
  - CONFUSIONAL STATE [None]
  - MEDICATION ERROR [None]
